FAERS Safety Report 10252644 (Version 1)
Quarter: 2014Q2

REPORT INFORMATION
  Report Type: Spontaneous
  Country: US (occurrence: None)
  Receive Date: 20140619
  Receipt Date: 20140619
  Transmission Date: 20141212
  Serious: Yes (Life-Threatening, Hospitalization)
  Sender: FDA-Public Use
  Company Number: DAV-AE-CLO-14-01

PATIENT
  Age: 23 Year
  Sex: Male
  Weight: 81.6 kg

DRUGS (12)
  1. CLONIDINE [Suspect]
     Indication: PAIN
     Route: 061
  2. GABAPENTIN [Concomitant]
  3. IMIPRAMINE [Concomitant]
  4. KETAMINE [Concomitant]
  5. LIDOCAINE [Concomitant]
  6. MEFENAMIC ACID [Concomitant]
  7. ARIPIPRAZOLE [Concomitant]
  8. CLONAZEPAM [Concomitant]
  9. DULOXETINE [Concomitant]
  10. OXYCODONE/ ACETAMINOPHEN [Concomitant]
  11. ZOLPIDEM [Concomitant]
  12. DEXTROAMPHETAMINE/ AMPHETAMINE [Concomitant]

REACTIONS (10)
  - Hypertensive crisis [None]
  - Sinus bradycardia [None]
  - Subarachnoid haemorrhage [None]
  - Mydriasis [None]
  - Mental status changes [None]
  - Overdose [None]
  - Dysarthria [None]
  - Disorientation [None]
  - Drug screen positive [None]
  - Vasculitis [None]
